FAERS Safety Report 7768339-X (Version None)
Quarter: 2011Q3

REPORT INFORMATION
  Report Type: 
  Country: None (occurrence: None)
  Receive Date: 20110922
  Receipt Date: 20110628
  Transmission Date: 20111222
  Serious: Yes (Other)
  Sender: FDA-Public Use
  Company Number: US-ASTRAZENECA-2011SE37464

PATIENT
  Sex: Female

DRUGS (4)
  1. SEROQUEL XR [Suspect]
     Indication: PARANOIA
     Route: 048
  2. LONG LIST OF MEDICATIONS [Concomitant]
  3. SEROQUEL XR [Suspect]
     Indication: DEPRESSION
     Route: 048
  4. REQUIP [Concomitant]

REACTIONS (5)
  - CONFUSIONAL STATE [None]
  - PARKINSONISM [None]
  - NERVOUSNESS [None]
  - DRUG INEFFECTIVE [None]
  - PARANOIA [None]
